FAERS Safety Report 8171351-2 (Version None)
Quarter: 2012Q1

REPORT INFORMATION
  Report Type: 
  Country: None (occurrence: None)
  Receive Date: 20120104
  Receipt Date: 20111201
  Transmission Date: 20120608
  Serious: No
  Sender: FDA-Public Use
  Company Number: 2011HGS-002587

PATIENT
  Age: 49 Year
  Sex: Female
  Weight: 68.0396 kg

DRUGS (6)
  1. BENLYSTA [Suspect]
     Indication: SYSTEMIC LUPUS ERYTHEMATOSUS
     Dosage: 10 MG/KG, 1 IN 4 WK, INTRAVENOUS  DRIP
     Route: 041
     Dates: start: 20110620
  2. BENADRYL [Concomitant]
  3. PLAQUENIL [Concomitant]
  4. ACETAMINOPHEN [Concomitant]
  5. HYDROCODONE BITARTRATE [Concomitant]
  6. SOLU-MEDROL [Concomitant]

REACTIONS (3)
  - BACK PAIN [None]
  - INSOMNIA [None]
  - MUSCLE SPASMS [None]
